FAERS Safety Report 20583561 (Version 1)
Quarter: 2022Q1

REPORT INFORMATION
  Report Type: Spontaneous
  Country: US (occurrence: US)
  Receive Date: 20220311
  Receipt Date: 20220311
  Transmission Date: 20220423
  Serious: Yes (Congenital Anomaly, Other)
  Sender: FDA-Public Use
  Company Number: US-MEDEXUS PHARMA, INC.-2022MED00109

PATIENT
  Sex: Female

DRUGS (1)
  1. METHOTREXATE [Suspect]
     Active Substance: METHOTREXATE
     Route: 048

REACTIONS (2)
  - Moebius II syndrome [Not Recovered/Not Resolved]
  - Foetal exposure during pregnancy [Not Recovered/Not Resolved]
